FAERS Safety Report 8166831-X (Version None)
Quarter: 2012Q1

REPORT INFORMATION
  Report Type: 
  Country: None (occurrence: None)
  Receive Date: 20120221
  Receipt Date: 20120130
  Transmission Date: 20120608
  Serious: Yes (Other)
  Sender: FDA-Public Use
  Company Number: COL_10938_2012

PATIENT
  Sex: Male

DRUGS (1)
  1. MENNEN SPEED STICK ANTIPERSPIRANT GEL 24/7 GAMETIME [Suspect]
     Dosage: (TWO SWIPES/NI TOPICAL), FEW YEARS
     Route: 061

REACTIONS (6)
  - PHOTOPHOBIA [None]
  - VISION BLURRED [None]
  - ACCIDENTAL EXPOSURE [None]
  - CHEMICAL BURNS OF EYE [None]
  - DRY EYE [None]
  - NO THERAPEUTIC RESPONSE [None]
